FAERS Safety Report 8006384-X (Version None)
Quarter: 2011Q4

REPORT INFORMATION
  Report Type: 
  Country: None (occurrence: None)
  Receive Date: 20111226
  Receipt Date: 20111215
  Transmission Date: 20120403
  Serious: Yes (Hospitalization, Other)
  Sender: FDA-Public Use
  Company Number: PHHY2011JP35509

PATIENT
  Age: 62 Year
  Sex: Female

DRUGS (1)
  1. TEGRETOL [Suspect]
     Indication: TRIGEMINAL NEURALGIA
     Dosage: UNK UKN, UNK
     Route: 048

REACTIONS (15)
  - MALAISE [None]
  - EOSINOPHILIA [None]
  - PYREXIA [None]
  - HUMAN HERPES VIRUS 6 SEROLOGY POSITIVE [None]
  - DRUG RASH WITH EOSINOPHILIA AND SYSTEMIC SYMPTOMS [None]
  - DERMATITIS EXFOLIATIVE [None]
  - LYMPHOCYTE STIMULATION TEST POSITIVE [None]
  - HEPATIC FUNCTION ABNORMAL [None]
  - LEUKOCYTOSIS [None]
  - RASH ERYTHEMATOUS [None]
  - RASH MACULO-PAPULAR [None]
  - WEIGHT INCREASED [None]
  - LYMPHADENOPATHY [None]
  - THYROIDITIS [None]
  - CYTOMEGALOVIRUS TEST POSITIVE [None]
